FAERS Safety Report 17939660 (Version 4)
Quarter: 2020Q3

REPORT INFORMATION
  Report Type: Spontaneous
  Country: CH (occurrence: CH)
  Receive Date: 20200624
  Receipt Date: 20200818
  Transmission Date: 20201103
  Serious: Yes (Other)
  Sender: FDA-Public Use
  Company Number: CH-AMERICAN REGENT INC-2020001283

PATIENT
  Age: 19 Year
  Sex: Female

DRUGS (2)
  1. VITAMIN D3 [Suspect]
     Active Substance: CHOLECALCIFEROL
     Indication: PRODUCT USED FOR UNKNOWN INDICATION
     Dosage: 300000 IU,1 IN 1 TOTAL
     Route: 048
     Dates: start: 20200604, end: 20200604
  2. FERINJECT [Suspect]
     Active Substance: FERRIC CARBOXYMALTOSE
     Indication: PRODUCT USED FOR UNKNOWN INDICATION
     Dosage: 1000 MG, 1 TOTAL (2X500 MG)
     Route: 042
     Dates: start: 20200604, end: 20200604

REACTIONS (5)
  - Influenza like illness [Recovered/Resolved]
  - Hypersensitivity [Unknown]
  - Gastrointestinal disorder [Unknown]
  - Suspected product quality issue [Unknown]
  - Condition aggravated [Unknown]

NARRATIVE: CASE EVENT DATE: 20200604
